FAERS Safety Report 14053712 (Version 18)
Quarter: 2018Q3

REPORT INFORMATION
  Report Type: Report from Study
  Country: CA (occurrence: CA)
  Receive Date: 20171006
  Receipt Date: 20180912
  Transmission Date: 20181010
  Serious: Yes (Hospitalization)
  Sender: FDA-Public Use
  Company Number: PHHY2017CA070108

PATIENT
  Age: 70 Year
  Sex: Male
  Weight: 88.44 kg

DRUGS (10)
  1. SANDOSTATIN LAR DEPOT [Suspect]
     Active Substance: OCTREOTIDE ACETATE
     Dosage: 30 MG, QMO
     Route: 030
     Dates: start: 20180315
  2. METFORMIN [Suspect]
     Active Substance: METFORMIN HYDROCHLORIDE
     Indication: PRODUCT USED FOR UNKNOWN INDICATION
     Route: 065
  3. AFINITOR [Suspect]
     Active Substance: EVEROLIMUS
     Indication: PRODUCT USED FOR UNKNOWN INDICATION
     Dosage: 10 MG, QD
     Route: 048
  4. INSULIN NOVO [Concomitant]
     Active Substance: INSULIN HUMAN
     Indication: PRODUCT USED FOR UNKNOWN INDICATION
     Dosage: QID
     Route: 065
  5. SANDOSTATIN LAR DEPOT [Suspect]
     Active Substance: OCTREOTIDE ACETATE
     Dosage: 20 MG, QMO (EVERY 4 WEEKS)
     Route: 030
  6. SANDOSTATIN LAR DEPOT [Suspect]
     Active Substance: OCTREOTIDE ACETATE
     Dosage: 30 MG, QMO
     Route: 030
     Dates: start: 20160804
  7. SANDOSTATIN LAR DEPOT [Suspect]
     Active Substance: OCTREOTIDE ACETATE
     Indication: CARCINOID TUMOUR
     Dosage: 30 MG, QMO
     Route: 030
     Dates: start: 20090219
  8. AMOXICLAV [Concomitant]
     Active Substance: AMOXICILLIN\CLAVULANIC ACID
     Indication: PRODUCT USED FOR UNKNOWN INDICATION
     Route: 065
  9. AFINITOR [Suspect]
     Active Substance: EVEROLIMUS
     Dosage: 7.5 MG, QD
     Route: 048
     Dates: start: 201711
  10. AFINITOR [Suspect]
     Active Substance: EVEROLIMUS
     Dosage: UNK
     Route: 065
     Dates: start: 201712

REACTIONS (25)
  - Dyskinesia [Unknown]
  - Gait disturbance [Unknown]
  - Dizziness [Unknown]
  - Myalgia [Unknown]
  - Blood glucose abnormal [Unknown]
  - Ureteric obstruction [Unknown]
  - Blood urine present [Unknown]
  - Secretion discharge [Unknown]
  - Renal disorder [Unknown]
  - Kidney infection [Unknown]
  - Blood pressure systolic increased [Unknown]
  - Weight decreased [Unknown]
  - Acne [Unknown]
  - Heart rate irregular [Unknown]
  - Chromaturia [Unknown]
  - Dysgeusia [Unknown]
  - Hypoaesthesia [Unknown]
  - Needle issue [Unknown]
  - Decreased appetite [Unknown]
  - Urinary tract infection [Recovering/Resolving]
  - Blood pressure increased [Unknown]
  - Joint range of motion decreased [Recovered/Resolved]
  - Heart rate increased [Unknown]
  - Body temperature decreased [Unknown]
  - Injection site pain [Unknown]

NARRATIVE: CASE EVENT DATE: 20170510
